FAERS Safety Report 9330338 (Version 2)
Quarter: 2013Q4

REPORT INFORMATION
  Report Type: Spontaneous
  Country: DE (occurrence: DE)
  Receive Date: 20130605
  Receipt Date: 20131107
  Transmission Date: 20140711
  Serious: Yes (Hospitalization)
  Sender: FDA-Public Use
  Company Number: DE-BIOGENIDEC-2013BI048333

PATIENT
  Age: 44 Year
  Sex: Female
  Weight: 77 kg

DRUGS (2)
  1. AVONEX [Suspect]
     Indication: MULTIPLE SCLEROSIS
     Route: 030
     Dates: start: 20121101, end: 201305
  2. IBUPROFEN [Concomitant]
     Indication: PROPHYLAXIS
     Dates: start: 20121101

REACTIONS (3)
  - Hypotension [Recovered/Resolved]
  - Bradycardia [Recovered/Resolved]
  - Arrhythmia [Recovered/Resolved]
